FAERS Safety Report 16907323 (Version 1)
Quarter: 2019Q4

REPORT INFORMATION
  Report Type: Spontaneous
  Country: US (occurrence: US)
  Receive Date: 20191011
  Receipt Date: 20191011
  Transmission Date: 20200122
  Serious: Yes (Other)
  Sender: FDA-Public Use
  Company Number: US-SUNOVION-2019SUN004181

PATIENT
  Sex: Female

DRUGS (2)
  1. LATUDA [Suspect]
     Active Substance: LURASIDONE HYDROCHLORIDE
     Dosage: UNK
     Route: 048
  2. KEFLEX [Suspect]
     Active Substance: CEPHALEXIN
     Indication: EAR INFECTION
     Dosage: 500 MG, TID
     Route: 065

REACTIONS (3)
  - Ear infection [Unknown]
  - Drug interaction [Unknown]
  - Suicidal ideation [Unknown]
